FAERS Safety Report 5393171-4 (Version None)
Quarter: 2007Q3

REPORT INFORMATION
  Report Type: 
  Country: None (occurrence: None)
  Receive Date: 20070718
  Receipt Date: 20070320
  Transmission Date: 20080115
  Serious: Yes (Other)
  Sender: FDA-Public Use
  Company Number: 2006123232

PATIENT
  Age: 77 Year
  Sex: Male
  Weight: 62.1 kg

DRUGS (7)
  1. CELEBREX [Suspect]
     Indication: PAIN
     Dosage: 200 MG (200 MG, 1 IN 1D)
     Dates: start: 20000101
  2. LISINOPRIL AND HYDROCHLOROTHIAZIDE [Suspect]
     Indication: HYPERTENSION
     Dates: start: 20060101
  3. MAXZIDE [Suspect]
     Indication: HYPERTENSION
     Dates: start: 20060101, end: 20060101
  4. ACETYLSALICYLIC ACID SRT [Concomitant]
  5. ALL OTHER THERAPEUTIC PRODUCTS (ALL OTHER THERAPEUTIC PRODUCTS) [Concomitant]
  6. FOSAMAX [Concomitant]
  7. CLARINEX [Concomitant]

REACTIONS (5)
  - DIZZINESS [None]
  - DRUG CLEARANCE DECREASED [None]
  - DRUG INTERACTION [None]
  - HYPERTENSION [None]
  - PAIN [None]
